FAERS Safety Report 12823786 (Version 1)
Quarter: 2016Q4

REPORT INFORMATION
  Report Type: Spontaneous
  Country: US (occurrence: US)
  Receive Date: 20161007
  Receipt Date: 20161007
  Transmission Date: 20170207
  Serious: No
  Sender: FDA-Public Use
  Company Number: US-GLAXOSMITHKLINE-US2016143636

PATIENT
  Age: 8 Year
  Sex: Female

DRUGS (1)
  1. PREVACID 24 HR [Suspect]
     Active Substance: LANSOPRAZOLE
     Indication: PRODUCT USED FOR UNKNOWN INDICATION
     Dosage: UNK
     Route: 048
     Dates: start: 20160916, end: 20160925

REACTIONS (4)
  - Adverse reaction [Not Recovered/Not Resolved]
  - Drug administered to patient of inappropriate age [Unknown]
  - Abdominal pain lower [Not Recovered/Not Resolved]
  - Muscle spasms [Not Recovered/Not Resolved]

NARRATIVE: CASE EVENT DATE: 20160918
